FAERS Safety Report 6276010-9 (Version None)
Quarter: 2009Q3

REPORT INFORMATION
  Report Type: 
  Country: None (occurrence: None)
  Receive Date: 20090720
  Receipt Date: 20090707
  Transmission Date: 20100115
  Serious: Yes (Other)
  Sender: FDA-Public Use
  Company Number: 1000007529

PATIENT
  Age: 36 Year
  Sex: Female

DRUGS (7)
  1. ESCITALOPRAM [Suspect]
     Indication: ANXIETY
     Dosage: 10 MG (10 MG,1 IN 1 D),ORAL
     Route: 048
     Dates: start: 20080929, end: 20090705
  2. ESCITALOPRAM [Suspect]
     Indication: DEPRESSION
     Dosage: 10 MG (10 MG,1 IN 1 D),ORAL
     Route: 048
     Dates: start: 20080929, end: 20090705
  3. ESCITALOPRAM [Suspect]
     Indication: ANXIETY
     Dosage: 5 MG (5 MG,1 IN 1 D),ORAL ; 5 MG (5 MG,1 IN 1 D),ORAL
     Route: 048
     Dates: start: 20080915, end: 20080928
  4. ESCITALOPRAM [Suspect]
     Indication: DEPRESSION
     Dosage: 5 MG (5 MG,1 IN 1 D),ORAL ; 5 MG (5 MG,1 IN 1 D),ORAL
     Route: 048
     Dates: start: 20080915, end: 20080928
  5. ESCITALOPRAM [Suspect]
     Indication: ANXIETY
     Dosage: 5 MG (5 MG,1 IN 1 D),ORAL ; 5 MG (5 MG,1 IN 1 D),ORAL
     Route: 048
     Dates: start: 20090706
  6. ESCITALOPRAM [Suspect]
     Indication: DEPRESSION
     Dosage: 5 MG (5 MG,1 IN 1 D),ORAL ; 5 MG (5 MG,1 IN 1 D),ORAL
     Route: 048
     Dates: start: 20090706
  7. BROMAZEPAM (TABLETS) [Concomitant]

REACTIONS (5)
  - BLOOD PROLACTIN INCREASED [None]
  - BREAST PAIN [None]
  - BREAST SWELLING [None]
  - GALACTORRHOEA [None]
  - MENSTRUATION DELAYED [None]
